FAERS Safety Report 6288098-X (Version None)
Quarter: 2009Q3

REPORT INFORMATION
  Report Type: 
  Country: None (occurrence: None)
  Receive Date: 20090729
  Receipt Date: 20080721
  Transmission Date: 20100115
  Serious: Yes (Disabling)
  Sender: FDA-Public Use
  Company Number: A0738894A

PATIENT
  Sex: Male

DRUGS (6)
  1. ZANTAC [Suspect]
     Indication: URTICARIA
     Dosage: 150MG TWICE PER DAY
     Route: 048
     Dates: start: 20080101
  2. NEXIUM [Suspect]
     Route: 065
  3. ALLEGRA [Concomitant]
  4. ZYRTEC [Concomitant]
  5. ATARAX [Concomitant]
  6. PREDNISONE [Concomitant]

REACTIONS (4)
  - DRUG INEFFECTIVE [None]
  - DYSPEPSIA [None]
  - OFF LABEL USE [None]
  - THERAPEUTIC RESPONSE UNEXPECTED [None]
